FAERS Safety Report 9407297 (Version 4)
Quarter: 2013Q4

REPORT INFORMATION
  Report Type: Report from Study
  Country: US (occurrence: US)
  Receive Date: 20130718
  Receipt Date: 20131215
  Transmission Date: 20140711
  Serious: Yes (Hospitalization)
  Sender: FDA-Public Use
  Company Number: US-PFIZER INC-2013207595

PATIENT
  Age: 55 Year
  Sex: Female
  Weight: 65.03 kg

DRUGS (8)
  1. FLUOROURACIL [Suspect]
     Indication: COLORECTAL CANCER METASTATIC
     Dosage: 400 MG/M2 ON DAY 1 EVERY 14 DAYS
     Route: 040
     Dates: start: 20130605, end: 20130619
  2. FLUOROURACIL [Suspect]
     Dosage: 2400 MG/M2 ON DAYS 1 AND 2 EVERY 14 DAYS
     Route: 042
     Dates: start: 20130605, end: 20130619
  3. IRINOTECAN HCL [Suspect]
     Indication: COLORECTAL CANCER METASTATIC
     Dosage: 180 MG/M2 ON DAY 1 EVERY 14 DAYS
     Route: 042
     Dates: start: 20130605, end: 20130619
  4. FOLINIC ACID [Suspect]
     Indication: COLORECTAL CANCER METASTATIC
     Dosage: 400 MG/M2 ON DAY 1 EVERY 14 DAYS
     Route: 042
     Dates: start: 20130605
  5. BLINDED THERAPY [Suspect]
     Indication: COLORECTAL CANCER METASTATIC
     Dosage: 8 MG/KG, CYCLIC
     Route: 042
     Dates: start: 20130605
  6. DICYCLOMINE [Concomitant]
     Indication: ABDOMINAL PAIN
     Dosage: UNK
     Dates: start: 20130624
  7. LOSARTAN [Concomitant]
     Indication: HYPERTENSION
     Dosage: UNK
     Dates: start: 20130206
  8. LEVAQUIN [Concomitant]
     Dosage: UNK
     Dates: start: 20130726, end: 20130727

REACTIONS (2)
  - Febrile neutropenia [Recovered/Resolved]
  - Urinary tract infection [Recovered/Resolved]
